FAERS Safety Report 25337911 (Version 1)
Quarter: 2025Q2

REPORT INFORMATION
  Report Type: Spontaneous
  Country: US (occurrence: US)
  Receive Date: 20250520
  Receipt Date: 20250520
  Transmission Date: 20250716
  Serious: No
  Sender: Integrated Therapeutic Solutions
  Company Number: US-Integrated Therapeutic Solutions Inc.-2177113

PATIENT
  Age: 60 Year
  Sex: Male

DRUGS (3)
  1. PYLERA [Suspect]
     Active Substance: BISMUTH SUBCITRATE POTASSIUM\METRONIDAZOLE\TETRACYCLINE HYDROCHLORIDE
     Indication: Helicobacter infection
  2. PYRAZINAMIDE [Suspect]
     Active Substance: PYRAZINAMIDE
  3. LEVOFLOXACIN [Suspect]
     Active Substance: LEVOFLOXACIN

REACTIONS (2)
  - Drug ineffective [Unknown]
  - Helicobacter infection [Unknown]
